FAERS Safety Report 23686451 (Version 2)
Quarter: 2024Q2

REPORT INFORMATION
  Report Type: Spontaneous
  Country: CA (occurrence: CA)
  Receive Date: 20240329
  Receipt Date: 20240417
  Transmission Date: 20240716
  Serious: Yes (Other)
  Sender: FDA-Public Use
  Company Number: None

PATIENT
  Age: 63 Year
  Sex: Female

DRUGS (1)
  1. HYDROXYCHLOROQUINE [Suspect]
     Active Substance: HYDROXYCHLOROQUINE
     Indication: Sjogren^s syndrome
     Dosage: 1 EVERY 24 HOURS

REACTIONS (8)
  - Diastolic dysfunction [Recovered/Resolved]
  - Muscular weakness [Recovered/Resolved]
  - Musculoskeletal toxicity [Recovered/Resolved]
  - Ventricular remodelling [Recovered/Resolved]
  - Toxic cardiomyopathy [Recovered/Resolved]
  - Off label use [Recovered/Resolved]
  - Cardiotoxicity [Not Recovered/Not Resolved]
  - Toxicity to various agents [Not Recovered/Not Resolved]
